FAERS Safety Report 8551888-4 (Version None)
Quarter: 2012Q3

REPORT INFORMATION
  Report Type: 
  Country: None (occurrence: None)
  Receive Date: 20120730
  Receipt Date: 20120718
  Transmission Date: 20120928
  Serious: Yes (Hospitalization)
  Sender: FDA-Public Use
  Company Number: FR-FRI-1000037304

PATIENT
  Sex: Female

DRUGS (2)
  1. SURMONTIL [Suspect]
     Dosage: 25 MG
     Route: 048
     Dates: start: 20120412, end: 20120619
  2. MILNACIPRAN [Suspect]
     Dosage: 150 MG
     Route: 048
     Dates: start: 20120430, end: 20120611

REACTIONS (2)
  - HEPATITIS CHOLESTATIC [None]
  - OVERDOSE [None]
